FAERS Safety Report 8872581 (Version 3)
Quarter: 2013Q1

REPORT INFORMATION
  Report Type: Spontaneous
  Country: US (occurrence: US)
  Receive Date: 20121030
  Receipt Date: 20130114
  Transmission Date: 20140127
  Serious: No
  Sender: FDA-Public Use
  Company Number: US-B.I. PHARMACEUTICALS,INC./RIDGEFIELD-2012-BP-26483BP

PATIENT
  Age: 56 None
  Sex: Female
  Weight: 40 kg

DRUGS (8)
  1. SPIRIVA [Suspect]
     Indication: CHRONIC OBSTRUCTIVE PULMONARY DISEASE
     Dosage: 18 MCG
     Route: 055
     Dates: start: 201202
  2. COMBIVENT [Suspect]
     Indication: CHRONIC OBSTRUCTIVE PULMONARY DISEASE
     Dosage: 8 PUF
     Route: 055
     Dates: start: 201208
  3. ADVAIR [Concomitant]
     Indication: CHRONIC OBSTRUCTIVE PULMONARY DISEASE
     Route: 055
     Dates: start: 201202
  4. PROVENTAL [Concomitant]
     Indication: CHRONIC OBSTRUCTIVE PULMONARY DISEASE
     Route: 055
     Dates: start: 201202
  5. DILANTIN [Concomitant]
     Indication: CONVULSION
     Dosage: 400 MG
     Route: 048
     Dates: start: 1977
  6. PHENOBARBITAL [Concomitant]
     Dosage: 90 MG
     Route: 048
     Dates: start: 1977
  7. TYLENOL [Concomitant]
     Indication: ARTHRALGIA
     Route: 048
  8. TYLENOL [Concomitant]
     Indication: HEADACHE

REACTIONS (2)
  - Dyspnoea [Not Recovered/Not Resolved]
  - Product quality issue [Recovered/Resolved]
